FAERS Safety Report 20965251 (Version 3)
Quarter: 2022Q3

REPORT INFORMATION
  Report Type: Spontaneous
  Country: JP (occurrence: JP)
  Receive Date: 20220616
  Receipt Date: 20220816
  Transmission Date: 20221027
  Serious: Yes (Hospitalization, Disabling)
  Sender: FDA-Public Use
  Company Number: JP-CHUGAI-2022022506

PATIENT
  Age: 82 Year
  Sex: Male
  Weight: 43 kg

DRUGS (5)
  1. TECENTRIQ [Suspect]
     Active Substance: ATEZOLIZUMAB
     Indication: Hepatocellular carcinoma
     Dosage: 1200 MILLIGRAM, SINGLE
     Route: 041
     Dates: start: 20220512, end: 20220512
  2. AVASTIN [Suspect]
     Active Substance: BEVACIZUMAB
     Indication: Hepatocellular carcinoma
     Dosage: 400 MILLIGRAM, SINGLE
     Route: 041
     Dates: start: 20220512, end: 20220512
  3. NESINA [Concomitant]
     Active Substance: ALOGLIPTIN BENZOATE
     Dosage: UNK
     Route: 065
  4. AMLODIPINE BESYLATE\ATORVASTATIN CALCIUM [Concomitant]
     Active Substance: AMLODIPINE BESYLATE\ATORVASTATIN CALCIUM
     Dosage: UNK
     Route: 065
  5. BICALUTAMIDE [Concomitant]
     Active Substance: BICALUTAMIDE
     Dosage: UNK
     Route: 065

REACTIONS (1)
  - Guillain-Barre syndrome [Recovering/Resolving]

NARRATIVE: CASE EVENT DATE: 20220516
